FAERS Safety Report 17672702 (Version 1)
Quarter: 2020Q2

REPORT INFORMATION
  Report Type: Spontaneous
  Country: US (occurrence: US)
  Receive Date: 20200415
  Receipt Date: 20200415
  Transmission Date: 20200713
  Serious: No
  Sender: FDA-Public Use
  Company Number: US-BAYER-2020-054584

PATIENT
  Sex: Male

DRUGS (1)
  1. LOTRIMIN ULTRA ANTIFUNGAL [Suspect]
     Active Substance: BUTENAFINE HYDROCHLORIDE
     Indication: THERAPEUTIC SKIN CARE TOPICAL
     Route: 061
     Dates: start: 20200320, end: 20200331

REACTIONS (2)
  - Drug ineffective [Unknown]
  - Tinea cruris [Not Recovered/Not Resolved]

NARRATIVE: CASE EVENT DATE: 20200329
